FAERS Safety Report 6425685-X (Version None)
Quarter: 2009Q4

REPORT INFORMATION
  Report Type: 
  Country: None (occurrence: None)
  Receive Date: 20091103
  Receipt Date: 20091020
  Transmission Date: 20100525
  Serious: Yes (Hospitalization, Other)
  Sender: FDA-Public Use
  Company Number: PHHY2009BR46189

PATIENT
  Sex: Male

DRUGS (6)
  1. EXFORGE [Suspect]
     Indication: HYPERTENSION
     Dosage: 160/5MG I TABLET IN THE MORNING
     Route: 048
     Dates: start: 20070101
  2. TYLEX [Concomitant]
     Dosage: 500 MG, QID
  3. IPRATROPIUM BROMIDE [Concomitant]
     Dosage: NEBULIZATIONS EVERY 6 HOURS
  4. DEXAMETHASONE [Concomitant]
     Dosage: 4 MG, BID
  5. DIAZEPAM [Concomitant]
     Dosage: 10 MG, QD
  6. LACTULOSE [Concomitant]
     Dosage: 667MG 30ML, QD

REACTIONS (3)
  - ASTHENIA [None]
  - BONE NEOPLASM MALIGNANT [None]
  - GASTROINTESTINAL DISORDER [None]
